FAERS Safety Report 10253882 (Version 1)
Quarter: 2014Q2

REPORT INFORMATION
  Report Type: Spontaneous
  Country: CL (occurrence: CL)
  Receive Date: 20140623
  Receipt Date: 20140623
  Transmission Date: 20141212
  Serious: Yes (Other)
  Sender: FDA-Public Use
  Company Number: CL-PFIZER INC-2014168498

PATIENT
  Sex: Female

DRUGS (6)
  1. XALATAN [Suspect]
     Indication: GLAUCOMA
     Dosage: 1 GTT, 1X/DAY
     Route: 047
     Dates: start: 2012
  2. LOSARTAN [Concomitant]
     Dosage: UNK
  3. CONCOR [Concomitant]
     Dosage: UNK
  4. GLIBENCLAMIDE [Concomitant]
     Dosage: UNK
  5. ASPIRIN ^BAYER^ [Concomitant]
     Dosage: UNK
  6. HYDROCHLOROTHIAZIDE [Concomitant]
     Dosage: UNK

REACTIONS (1)
  - Eye disorder [Unknown]
